FAERS Safety Report 13296881 (Version 1)
Quarter: 2017Q1

REPORT INFORMATION
  Report Type: Spontaneous
  Country: US (occurrence: US)
  Receive Date: 20170306
  Receipt Date: 20170306
  Transmission Date: 20170428
  Serious: No
  Sender: FDA-Public Use
  Company Number: US-TEVA-729024ACC

PATIENT
  Age: 51 Year
  Sex: Female
  Weight: 75 kg

DRUGS (1)
  1. TAMOXIFEN [Suspect]
     Active Substance: TAMOXIFEN
     Indication: BREAST CANCER
     Dates: start: 20161216

REACTIONS (5)
  - Flatulence [Unknown]
  - Pain [Unknown]
  - Diarrhoea [Unknown]
  - Malaise [Unknown]
  - Product substitution issue [Unknown]

NARRATIVE: CASE EVENT DATE: 20161216
